FAERS Safety Report 10650275 (Version 5)
Quarter: 2015Q1

REPORT INFORMATION
  Report Type: Spontaneous
  Country: US (occurrence: US)
  Receive Date: 20141212
  Receipt Date: 20150120
  Transmission Date: 20150720
  Serious: Yes (Hospitalization, Other)
  Sender: FDA-Public Use
  Company Number: US-ACTELION-A-US2014-107474

PATIENT
  Age: 54 Year
  Sex: Female

DRUGS (6)
  1. SILDENAFIL. [Concomitant]
     Active Substance: SILDENAFIL
     Indication: PULMONARY ARTERIAL HYPERTENSION
  2. OPSUMIT [Suspect]
     Active Substance: MACITENTAN
     Indication: PULMONARY ARTERIAL HYPERTENSION
     Dosage: 10 MG, QD
     Route: 048
     Dates: start: 20140813
  3. ASPIRIN. [Concomitant]
     Active Substance: ASPIRIN
  4. VELETRI [Suspect]
     Active Substance: EPOPROSTENOL
     Dosage: 8 NG/KG, PER MIN
     Route: 042
  5. WARFARIN [Concomitant]
     Active Substance: WARFARIN
  6. VELETRI [Suspect]
     Active Substance: EPOPROSTENOL
     Indication: PULMONARY ARTERIAL HYPERTENSION
     Dosage: 3 NG, PER MIN
     Route: 042
     Dates: start: 20140929

REACTIONS (16)
  - Blindness unilateral [Unknown]
  - Hot flush [Unknown]
  - Joint dislocation [Unknown]
  - Back pain [Unknown]
  - Vision blurred [Unknown]
  - Vomiting [Unknown]
  - Visual impairment [Unknown]
  - Catheter site erythema [Unknown]
  - Photophobia [Unknown]
  - Pain in jaw [Unknown]
  - Catheter site pruritus [Unknown]
  - Weight decreased [Unknown]
  - Muscle strain [Unknown]
  - Fluid retention [Unknown]
  - Rib fracture [Unknown]
  - Catheter site haemorrhage [Unknown]
